FAERS Safety Report 7416608-5 (Version None)
Quarter: 2011Q2

REPORT INFORMATION
  Report Type: 
  Country: None (occurrence: None)
  Receive Date: 20110415
  Receipt Date: 20110405
  Transmission Date: 20111010
  Serious: Yes (Hospitalization)
  Sender: FDA-Public Use
  Company Number: US-BIOGENIDEC-2011BI008698

PATIENT
  Age: 52 Year
  Sex: Female

DRUGS (2)
  1. AVONEX [Suspect]
     Indication: MULTIPLE SCLEROSIS
     Route: 030
     Dates: start: 20100726
  2. AVONEX [Suspect]
     Route: 030
     Dates: start: 19970119, end: 20030101

REACTIONS (10)
  - URINARY TRACT INFECTION [None]
  - FATIGUE [None]
  - MUSCLE SPASMS [None]
  - GENERAL SYMPTOM [None]
  - VAGINAL INFECTION [None]
  - FALL [None]
  - URINARY INCONTINENCE [None]
  - BLOOD IRON DECREASED [None]
  - DIARRHOEA [None]
  - MULTIPLE SCLEROSIS RELAPSE [None]
